FAERS Safety Report 5737623-3 (Version None)
Quarter: 2008Q2

REPORT INFORMATION
  Report Type: 
  Country: None (occurrence: None)
  Receive Date: 20080514
  Receipt Date: 20080511
  Transmission Date: 20081010
  Serious: Yes (Other)
  Sender: FDA-Public Use
  Company Number: GB-ROCHE-563546

PATIENT
  Sex: Female
  Weight: 85 kg

DRUGS (5)
  1. ORLISTAT [Suspect]
     Indication: OBESITY
     Route: 048
     Dates: start: 20080411
  2. UNSPECIFIED DRUG [Concomitant]
     Indication: DEPRESSION
     Dosage: ANTI DEPRESSANT - PATIENT DID NOT KNOW THE BRAND NAME.
     Route: 048
  3. VENTOLIN [Concomitant]
     Indication: ASTHMA
  4. SYMBICORT [Concomitant]
     Indication: ASTHMA
  5. SYMBICORT [Concomitant]

REACTIONS (1)
  - HYPOTHYROIDISM [None]
